FAERS Safety Report 17112572 (Version 2)
Quarter: 2020Q1

REPORT INFORMATION
  Report Type: Report from Study
  Country: US (occurrence: US)
  Receive Date: 20191204
  Receipt Date: 20200227
  Transmission Date: 20200409
  Serious: Yes (Hospitalization)
  Sender: FDA-Public Use
  Company Number: NVSC2019US046844

PATIENT
  Age: 65 Year
  Sex: Female
  Weight: 81.4 kg

DRUGS (7)
  1. INTEGRA F [Concomitant]
     Active Substance: ASCORBIC ACID\FERROUS ASPARTO GLYCINATE\FERROUS FUMARATE\FOLIC ACID\NIACIN
     Indication: SUPPLEMENTATION THERAPY
     Dosage: UNK,UNK,QD
     Route: 065
     Dates: start: 201305
  2. ADVIL [Concomitant]
     Active Substance: IBUPROFEN
     Indication: PAIN
     Dosage: 200 MG
     Route: 065
     Dates: start: 20160217
  3. METFORMIN ER [Concomitant]
     Active Substance: METFORMIN HYDROCHLORIDE
     Indication: DIABETES MELLITUS
     Dosage: 500 MG, BID
     Route: 065
     Dates: start: 201304
  4. ZINC SULFATE. [Concomitant]
     Active Substance: ZINC SULFATE
     Indication: IMMUNE ENHANCEMENT THERAPY
     Dosage: 250 MG, QD
     Route: 065
     Dates: start: 20160201
  5. CITRACAL [Concomitant]
     Active Substance: CALCIUM CITRATE
     Indication: SUPPLEMENTATION THERAPY
     Dosage: UNK,UNK,QD
     Route: 065
     Dates: start: 201308
  6. VOTRIENT [Suspect]
     Active Substance: PAZOPANIB HYDROCHLORIDE
     Indication: VON HIPPEL-LINDAU DISEASE
     Dosage: 600 MG, QD
     Route: 048
     Dates: start: 20130819
  7. ACTOS [Concomitant]
     Active Substance: PIOGLITAZONE HYDROCHLORIDE
     Indication: DIABETES MELLITUS
     Dosage: 20 MG, QD
     Route: 065
     Dates: start: 201304

REACTIONS (1)
  - Muscular weakness [Not Recovered/Not Resolved]

NARRATIVE: CASE EVENT DATE: 20191118
